FAERS Safety Report 9419390 (Version 4)
Quarter: 2013Q3

REPORT INFORMATION
  Report Type: Report from Study
  Country: US (occurrence: US)
  Receive Date: 20130725
  Receipt Date: 20130911
  Transmission Date: 20140515
  Serious: Yes (Hospitalization, Other)
  Sender: FDA-Public Use
  Company Number: US-BAYER-2013-089858

PATIENT
  Age: 56 Year
  Sex: Male

DRUGS (2)
  1. NEXAVAR [Suspect]
     Indication: HEPATIC CANCER
     Dosage: 2X 400MG
     Route: 048
     Dates: start: 20130708
  2. NEXAVAR [Suspect]
     Indication: HEPATIC CANCER
     Dosage: 1 DF, BID(DOSE REDUCED)
     Route: 048
     Dates: start: 201308

REACTIONS (5)
  - Swelling face [None]
  - Dysphonia [None]
  - Fatigue [None]
  - Malaise [None]
  - Pancreatic disorder [None]
